FAERS Safety Report 10445200 (Version 1)
Quarter: 2014Q3

REPORT INFORMATION
  Report Type: Spontaneous
  Country: TR (occurrence: TR)
  Receive Date: 20140910
  Receipt Date: 20140910
  Transmission Date: 20150326
  Serious: Yes (Hospitalization, Other)
  Sender: FDA-Public Use
  Company Number: PHHY2014TR115389

PATIENT
  Age: 12 Year
  Sex: Male

DRUGS (3)
  1. L DOPA [Suspect]
     Active Substance: LEVODOPA
  2. BACLOFEN. [Suspect]
     Active Substance: BACLOFEN
  3. DIAZEPAM. [Suspect]
     Active Substance: DIAZEPAM

REACTIONS (13)
  - Rectal haemorrhage [Unknown]
  - Haematuria [Unknown]
  - Contracted bladder [Unknown]
  - Intestinal dilatation [Unknown]
  - Oliguria [Unknown]
  - Haematemesis [Unknown]
  - Ascites [Unknown]
  - Flatulence [Unknown]
  - Constipation [Unknown]
  - General physical health deterioration [Unknown]
  - Renal impairment [Unknown]
  - Abdominal distension [Unknown]
  - Faecaloma [Unknown]
